FAERS Safety Report 24421354 (Version 1)
Quarter: 2024Q4

REPORT INFORMATION
  Report Type: Spontaneous
  Country: US (occurrence: US)
  Receive Date: 20241010
  Receipt Date: 20241010
  Transmission Date: 20250115
  Serious: Yes (Life-Threatening, Hospitalization)
  Sender: ACCORD
  Company Number: US-MLMSERVICE-20240927-PI202509-00244-1

PATIENT
  Age: 48 Year
  Sex: Male

DRUGS (5)
  1. DEXMEDETOMIDINE HYDROCHLORIDE [Suspect]
     Active Substance: DEXMEDETOMIDINE HYDROCHLORIDE
     Indication: Sedation
  2. OCTREOTIDE ACETATE [Suspect]
     Active Substance: OCTREOTIDE ACETATE
     Indication: Product used for unknown indication
  3. PROPOFOL [Suspect]
     Active Substance: PROPOFOL
     Indication: Sedation
  4. EPINEPHRINE [Concomitant]
     Active Substance: EPINEPHRINE
     Indication: Haemorrhage
  5. EPINEPHRINE [Concomitant]
     Active Substance: EPINEPHRINE
     Indication: Mallory-Weiss syndrome

REACTIONS (4)
  - Unresponsive to stimuli [Unknown]
  - Sinus bradycardia [Recovered/Resolved]
  - Seizure like phenomena [Unknown]
  - Sinus arrest [Recovered/Resolved]
